FAERS Safety Report 25159577 (Version 2)
Quarter: 2025Q2

REPORT INFORMATION
  Report Type: Spontaneous
  Country: US (occurrence: US)
  Receive Date: 20250404
  Receipt Date: 20250424
  Transmission Date: 20250717
  Serious: No
  Sender: HETERO
  Company Number: US-HETERO-HET2025US01560

PATIENT
  Sex: Male
  Weight: 79.3 kg

DRUGS (1)
  1. FEXOFENADINE [Suspect]
     Active Substance: FEXOFENADINE HYDROCHLORIDE
     Indication: Rhinorrhoea
     Dosage: 180 MILLIGRAM, Q.A.M. (ONCE A DAY)
     Route: 048

REACTIONS (1)
  - Drug ineffective [Unknown]
